FAERS Safety Report 19493545 (Version 1)
Quarter: 2021Q3

REPORT INFORMATION
  Report Type: Spontaneous
  Country: DE (occurrence: DE)
  Receive Date: 20210705
  Receipt Date: 20210705
  Transmission Date: 20211014
  Serious: Yes (Hospitalization)
  Sender: FDA-Public Use
  Company Number: DE-TEVA-2021-DE-1929812

PATIENT
  Age: 27 Year
  Sex: Male
  Weight: 132 kg

DRUGS (3)
  1. IBUPROFEN. [Suspect]
     Active Substance: IBUPROFEN
     Dosage: 1200 MILLIGRAM DAILY; 1?0?1?0
     Route: 048
  2. BISOPROLOL [Suspect]
     Active Substance: BISOPROLOL
     Dosage: 2.5 MILLIGRAM DAILY; 1?0?0?0
     Route: 048
  3. PANTOPRAZOL [Concomitant]
     Active Substance: PANTOPRAZOLE SODIUM
     Dosage: 20 MILLIGRAM DAILY; 20 MG, 1?0?0?0
     Route: 048

REACTIONS (4)
  - Chest pain [Unknown]
  - Arrhythmia [Unknown]
  - Palpitations [Unknown]
  - Dyspnoea [Unknown]
